FAERS Safety Report 5251132-X (Version None)
Quarter: 2007Q1

REPORT INFORMATION
  Report Type: 
  Country: None (occurrence: None)
  Receive Date: 20070228
  Receipt Date: 20060831
  Transmission Date: 20070707
  Serious: No
  Sender: FDA-Public Use
  Company Number: US-GLAXOSMITHKLINE-A0618771A

PATIENT
  Age: 61 Year
  Sex: Female

DRUGS (5)
  1. LAMICTAL [Suspect]
     Indication: DRUG USE FOR UNKNOWN INDICATION
     Dosage: 200MG TWICE PER DAY
     Route: 048
  2. SYMBYAX [Suspect]
     Indication: DRUG USE FOR UNKNOWN INDICATION
     Dosage: 625MG UNKNOWN
     Route: 065
  3. PHENOBARBITAL TAB [Suspect]
     Indication: TREMOR
     Route: 065
  4. INDERAL [Concomitant]
  5. PEPCID [Concomitant]

REACTIONS (3)
  - PRURITUS [None]
  - RASH GENERALISED [None]
  - TREMOR [None]
